FAERS Safety Report 16893781 (Version 1)
Quarter: 2019Q4

REPORT INFORMATION
  Report Type: Spontaneous
  Country: CA (occurrence: CA)
  Receive Date: 20191008
  Receipt Date: 20191008
  Transmission Date: 20200122
  Serious: Yes (Other)
  Sender: FDA-Public Use
  Company Number: CA-PFIZER INC-2019428162

PATIENT
  Age: 52 Year
  Sex: Female
  Weight: 63.49 kg

DRUGS (1)
  1. METHOTREXATE SODIUM. [Suspect]
     Active Substance: METHOTREXATE SODIUM
     Indication: PSORIATIC ARTHROPATHY
     Dosage: 25 MG/ML, WEEKLY (1 EVERY 1 WEEK)
     Route: 058

REACTIONS (6)
  - C-reactive protein increased [Recovered/Resolved]
  - Product quality issue [Recovered/Resolved]
  - Off label use [Unknown]
  - Product use issue [Unknown]
  - Pain [Recovered/Resolved]
  - Drug ineffective [Recovered/Resolved]
